FAERS Safety Report 5069579-3 (Version None)
Quarter: 2006Q3

REPORT INFORMATION
  Report Type: 
  Country: None (occurrence: None)
  Receive Date: 20060731
  Receipt Date: 20060719
  Transmission Date: 20061208
  Serious: Yes (Other)
  Sender: FDA-Public Use
  Company Number: 2006082299

PATIENT
  Age: 71 Year
  Sex: Female

DRUGS (1)
  1. ALDACTONE [Suspect]
     Indication: DRUG USE FOR UNKNOWN INDICATION
     Dosage: ORAL
     Route: 048

REACTIONS (1)
  - PANCYTOPENIA [None]
